FAERS Safety Report 7867504-0 (Version None)
Quarter: 2011Q4

REPORT INFORMATION
  Report Type: 
  Country: None (occurrence: None)
  Receive Date: 20111028
  Receipt Date: 20111018
  Transmission Date: 20120403
  Serious: Yes (Other)
  Sender: FDA-Public Use
  Company Number: PHEH2010US02602

PATIENT
  Sex: Female
  Weight: 49.887 kg

DRUGS (12)
  1. AMOXICILLIN [Concomitant]
  2. PLAVIX [Concomitant]
  3. ENOXAPARIN [Concomitant]
  4. ASPIRIN [Concomitant]
  5. METRONIDAZOLE [Concomitant]
  6. METOPROLOL TARTRATE [Concomitant]
  7. ZOMETA [Suspect]
     Indication: OSTEOPOROSIS
     Dosage: 4 MG, Q3MO
     Route: 042
     Dates: start: 20060301
  8. TEMAZEPAM [Concomitant]
  9. ADVAIR DISKUS 100/50 [Concomitant]
     Dosage: 2 A DAY.
  10. FEMARA [Concomitant]
  11. LOPRESSOR [Concomitant]
  12. NITROGLYCERIN [Concomitant]

REACTIONS (21)
  - DISABILITY [None]
  - ULCER HAEMORRHAGE [None]
  - LOOSE TOOTH [None]
  - INFECTION [None]
  - MUSCLE SPASMS [None]
  - DYSPNOEA [None]
  - ANHEDONIA [None]
  - EXPOSED BONE IN JAW [None]
  - HEPATIC CYST [None]
  - ARRHYTHMIA [None]
  - HYPERTENSION [None]
  - PAIN [None]
  - GENERAL PHYSICAL HEALTH DETERIORATION [None]
  - PALATAL OEDEMA [None]
  - DEPRESSION [None]
  - OSTEONECROSIS OF JAW [None]
  - INJURY [None]
  - ANXIETY [None]
  - PRIMARY SEQUESTRUM [None]
  - TENDERNESS [None]
  - ANGINA UNSTABLE [None]
